FAERS Safety Report 10004037 (Version 2)
Quarter: 2014Q1

REPORT INFORMATION
  Report Type: Spontaneous
  Country: PR (occurrence: PR)
  Receive Date: 20140312
  Receipt Date: 20140314
  Transmission Date: 20141002
  Serious: No
  Sender: FDA-Public Use
  Company Number: US-009507513-1402USA012144

PATIENT
  Age: 52 Year
  Sex: Female

DRUGS (3)
  1. RIBAVIRIN [Suspect]
     Indication: HEPATITIS C
     Dosage: 3 AM AND 2 PM, (TWICE A DAY)
     Route: 048
     Dates: start: 20140221
  2. PEGINTERFERON ALFA-2B [Suspect]
     Indication: HEPATITIS C
     Dosage: 0.5 CC, ONCE A WEEK
     Route: 058
     Dates: start: 20140221
  3. PREMARIN [Concomitant]
     Dosage: 1 QD

REACTIONS (7)
  - Chills [Unknown]
  - Myalgia [Unknown]
  - Headache [Unknown]
  - Dizziness [Unknown]
  - Nausea [Unknown]
  - Myalgia [Unknown]
  - Chills [Unknown]
